FAERS Safety Report 19655198 (Version 2)
Quarter: 2021Q3

REPORT INFORMATION
  Report Type: Spontaneous
  Country: JP (occurrence: JP)
  Receive Date: 20210803
  Receipt Date: 20210813
  Transmission Date: 20211014
  Serious: Yes (Death, Other)
  Sender: FDA-Public Use
  Company Number: JP-009507513-2107JPN002521J

PATIENT
  Age: 69 Year
  Sex: Male

DRUGS (1)
  1. KEYTRUDA [Suspect]
     Active Substance: PEMBROLIZUMAB
     Indication: LUNG SQUAMOUS CELL CARCINOMA STAGE IV
     Dosage: UNK
     Route: 041
     Dates: start: 202001, end: 2020

REACTIONS (5)
  - Immune-mediated enterocolitis [Unknown]
  - Sepsis [Fatal]
  - Hepatic enzyme increased [Unknown]
  - Immune-mediated renal disorder [Unknown]
  - Immune-mediated lung disease [Unknown]

NARRATIVE: CASE EVENT DATE: 202006
